FAERS Safety Report 23184662 (Version 1)
Quarter: 2023Q4

REPORT INFORMATION
  Report Type: Spontaneous
  Country: PT (occurrence: PT)
  Receive Date: 20231115
  Receipt Date: 20231115
  Transmission Date: 20240109
  Serious: Yes (Other)
  Sender: FDA-Public Use
  Company Number: PT-AMGEN-PRTSP2023199514

PATIENT
  Age: 52 Year
  Sex: Female

DRUGS (5)
  1. TRASTUZUMAB [Suspect]
     Active Substance: TRASTUZUMAB
     Indication: HER2 positive breast cancer
     Dosage: UNK
     Route: 065
  2. EXEMESTANE [Suspect]
     Active Substance: EXEMESTANE
     Indication: HER2 positive breast cancer
     Dosage: UNK
     Route: 065
     Dates: start: 202208
  3. TAMOXIFEN [Suspect]
     Active Substance: TAMOXIFEN
     Indication: HER2 positive breast cancer
     Dosage: UNK
     Route: 065
  4. PHESGO [Suspect]
     Active Substance: HYALURONIDASE-ZZXF\PERTUZUMAB\TRASTUZUMAB
     Indication: HER2 positive breast cancer
     Dosage: UNK UNK, Q3WK
     Route: 065
     Dates: start: 202208
  5. HYALURONIDASE (HUMAN RECOMBINANT) [Concomitant]
     Active Substance: HYALURONIDASE (HUMAN RECOMBINANT)
     Indication: HER2 positive breast cancer
     Dosage: UNK
     Route: 065

REACTIONS (2)
  - HER2 positive breast cancer [Unknown]
  - Metastatic lymphoma [Unknown]

NARRATIVE: CASE EVENT DATE: 20230401
